FAERS Safety Report 9051471 (Version 1)
Quarter: 2013Q1

REPORT INFORMATION
  Report Type: Spontaneous
  Country: US (occurrence: US)
  Receive Date: 20130206
  Receipt Date: 20130206
  Transmission Date: 20140127
  Serious: No
  Sender: FDA-Public Use
  Company Number: US-ALLERGAN-1213661US

PATIENT
  Age: 62 Year
  Sex: Female

DRUGS (3)
  1. RESTASIS [Suspect]
     Indication: PRODUCT USED FOR UNKNOWN INDICATION
     Dosage: 2 GTT, BID
     Route: 047
     Dates: start: 20120921
  2. SYSTANE [Concomitant]
     Indication: EYE LUBRICATION THERAPY
  3. SIMILASAN [Concomitant]
     Indication: HYPERSENSITIVITY

REACTIONS (2)
  - Vision blurred [Unknown]
  - Eye discharge [Unknown]
